FAERS Safety Report 6409363-9 (Version None)
Quarter: 2009Q4

REPORT INFORMATION
  Report Type: 
  Country: None (occurrence: None)
  Receive Date: 20091021
  Receipt Date: 20091015
  Transmission Date: 20100525
  Serious: Yes (Life-Threatening)
  Sender: FDA-Public Use
  Company Number: JP-BAXTER-2009BH011740

PATIENT
  Age: 17 Year
  Sex: Male

DRUGS (3)
  1. UROMITEXAN BAXTER [Suspect]
     Indication: PROPHYLAXIS
     Route: 042
     Dates: start: 20021001, end: 20040601
  2. ENDOXAN BAXTER [Suspect]
     Indication: SYSTEMIC LUPUS ERYTHEMATOSUS
     Route: 041
     Dates: start: 20021017, end: 20040601
  3. PREDONINE [Concomitant]
     Indication: SYSTEMIC LUPUS ERYTHEMATOSUS
     Route: 048
     Dates: start: 20021006, end: 20070403

REACTIONS (1)
  - MYELODYSPLASTIC SYNDROME [None]
